FAERS Safety Report 19957123 (Version 1)
Quarter: 2021Q4

REPORT INFORMATION
  Report Type: Report from Study
  Country: CA (occurrence: CA)
  Receive Date: 20211015
  Receipt Date: 20211015
  Transmission Date: 20220303
  Serious: Yes (Hospitalization)
  Sender: FDA-Public Use
  Company Number: CA-CHIESI-2021CHF04954

PATIENT
  Sex: Male
  Weight: 73 kg

DRUGS (2)
  1. DEFERIPRONE [Suspect]
     Active Substance: DEFERIPRONE
     Indication: Sickle cell disease
     Dosage: UNK, BID
     Route: 048
  2. DEFERIPRONE [Suspect]
     Active Substance: DEFERIPRONE
     Indication: Off label use

REACTIONS (4)
  - Hepatic enzyme increased [Recovering/Resolving]
  - Hepatic pain [Recovering/Resolving]
  - Off label use [Unknown]
  - Off label use [Unknown]
